FAERS Safety Report 7037389-3 (Version None)
Quarter: 2010Q4

REPORT INFORMATION
  Report Type: 
  Country: None (occurrence: None)
  Receive Date: 20101011
  Receipt Date: 20100930
  Transmission Date: 20110411
  Serious: Yes (Hospitalization)
  Sender: FDA-Public Use
  Company Number: AT-PFIZER INC-2010124240

PATIENT
  Age: 58 Year
  Sex: Male

DRUGS (14)
  1. SUTENT [Suspect]
     Dosage: 50 MG, UNK
     Dates: start: 20100907, end: 20100927
  2. RILMENIDINE [Concomitant]
     Indication: CARDIAC DISORDER
     Dosage: 1 MG, 2X/DAY
  3. ALLOPURINOL [Concomitant]
     Indication: GOUT
     Dosage: 300 MG, 1X/DAY
  4. PANTOPRAZOLE [Concomitant]
     Indication: PROPHYLAXIS
     Dosage: 40 MG, 1X/DAY
  5. ASPIRIN [Concomitant]
     Indication: HAEMODILUTION
     Dosage: 100 MG, 1X/DAY
  6. AMLODIPINE [Concomitant]
     Indication: BLOOD PRESSURE
     Dosage: 5 MG, 2X/DAY
  7. THYREX [Concomitant]
     Indication: THYROID DISORDER
     Dosage: 0.1 MG, 1X/DAY
  8. ALISKIREN [Concomitant]
     Indication: BLOOD PRESSURE
     Dosage: 300 MG, 1X/DAY
  9. URALYT-U [Concomitant]
     Indication: BLADDER DISORDER
     Dosage: UNK
  10. ROCALTROL [Concomitant]
     Indication: BONE DISORDER
     Dosage: 0.5 MG, 1X/DAY
  11. TRAMADOL HYDROCHLORIDE [Concomitant]
     Indication: PAIN
     Dosage: 150 UNK, 2X/DAY
  12. METOPROLOL TARTRATE [Concomitant]
     Indication: BLOOD PRESSURE
     Dosage: 95 MG, 3X/DAY
  13. HYDAL [Concomitant]
     Indication: PAIN
     Dosage: 2 MG, 1X/DAY
  14. HYDAL [Concomitant]
     Dosage: 1.3 MG, AS NEEDED

REACTIONS (1)
  - GENERAL PHYSICAL HEALTH DETERIORATION [None]
